FAERS Safety Report 5846599-X (Version None)
Quarter: 2008Q3

REPORT INFORMATION
  Report Type: 
  Country: None (occurrence: None)
  Receive Date: 20080815
  Receipt Date: 20080806
  Transmission Date: 20090109
  Serious: Yes (Other)
  Sender: FDA-Public Use
  Company Number: CA-JNJFOC-20080501595

PATIENT
  Age: 27 Year
  Sex: Female
  Weight: 55 kg

DRUGS (13)
  1. REMICADE [Suspect]
     Route: 042
  2. REMICADE [Suspect]
     Route: 042
  3. REMICADE [Suspect]
     Route: 042
  4. REMICADE [Suspect]
     Route: 042
  5. REMICADE [Suspect]
     Indication: ANAL FISTULA
     Route: 042
  6. REMICADE [Suspect]
     Indication: CROHN'S DISEASE
     Route: 042
  7. RATIO-METHOTREXATE [Concomitant]
     Dosage: 2.5 MG (7 TABLETS ONCE PER WEEK)
  8. BENADRYL [Concomitant]
     Indication: PREMEDICATION
     Dosage: DOSE: 50
  9. HYDROCORTIZONE [Concomitant]
     Indication: PREMEDICATION
     Dosage: DOSE:200
     Route: 042
  10. APO-FOLIC [Concomitant]
     Dosage: 5 MG (1 TABLET 3 X/WEEK)
  11. ACETAMINOPHEN [Concomitant]
     Indication: PREMEDICATION
     Dosage: DOSE: 650
  12. DEPO-PROVERA [Concomitant]
     Route: 030
  13. PREDNISONE TAB [Concomitant]

REACTIONS (2)
  - ANAL FISTULA [None]
  - VAGINAL FISTULA [None]
